FAERS Safety Report 21354421 (Version 4)
Quarter: 2022Q4

REPORT INFORMATION
  Report Type: Report from Study
  Country: FR (occurrence: FR)
  Receive Date: 20220920
  Receipt Date: 20221219
  Transmission Date: 20230113
  Serious: Yes (Hospitalization)
  Sender: FDA-Public Use
  Company Number: FR-GILEAD-2022-0590675

PATIENT
  Sex: Male
  Weight: 65 kg

DRUGS (25)
  1. SACITUZUMAB GOVITECAN [Suspect]
     Active Substance: SACITUZUMAB GOVITECAN
     Indication: Non-small cell lung cancer
     Dosage: 650 MG
     Route: 042
     Dates: start: 20220706, end: 20220706
  2. SACITUZUMAB GOVITECAN [Suspect]
     Active Substance: SACITUZUMAB GOVITECAN
     Dosage: 670 MG
     Route: 042
     Dates: start: 20220713, end: 20220713
  3. SODIUM ALGINATE\SODIUM BICARBONATE [Concomitant]
     Active Substance: SODIUM ALGINATE\SODIUM BICARBONATE
     Indication: Supplementation therapy
     Route: 048
     Dates: start: 20220704, end: 20220707
  4. SODIUM ALGINATE\SODIUM BICARBONATE [Concomitant]
     Active Substance: SODIUM ALGINATE\SODIUM BICARBONATE
     Route: 048
     Dates: start: 20220712, end: 20220713
  5. MONTMORILLONITE [Concomitant]
     Active Substance: MONTMORILLONITE
     Indication: Supplementation therapy
     Route: 048
     Dates: start: 20220706
  6. FUROSEMIDE [Concomitant]
     Active Substance: FUROSEMIDE
     Indication: Hypertension
     Route: 048
     Dates: start: 20220705, end: 20220707
  7. FUROSEMIDE [Concomitant]
     Active Substance: FUROSEMIDE
     Route: 048
     Dates: start: 20220713, end: 20220713
  8. LOPERAMIDE [Concomitant]
     Active Substance: LOPERAMIDE
     Indication: Supplementation therapy
     Route: 048
     Dates: start: 20220706
  9. METOCLOPRAMIDE [Concomitant]
     Active Substance: METOCLOPRAMIDE
     Indication: Supplementation therapy
     Route: 048
     Dates: start: 20220706
  10. MOVICOL [Concomitant]
     Active Substance: POLYETHYLENE GLYCOL 3350\POTASSIUM CHLORIDE\SODIUM BICARBONATE\SODIUM CHLORIDE
     Indication: Supplementation therapy
     Route: 048
     Dates: start: 20220706
  11. ONDANSETRON [Concomitant]
     Active Substance: ONDANSETRON
     Indication: Supplementation therapy
     Route: 048
     Dates: start: 20220706
  12. PANTOPRAZOLE [Concomitant]
     Active Substance: PANTOPRAZOLE
     Indication: Supplementation therapy
     Route: 048
     Dates: start: 20220704, end: 20220707
  13. PANTOPRAZOLE [Concomitant]
     Active Substance: PANTOPRAZOLE
     Route: 048
     Dates: start: 20220712, end: 20220713
  14. ACETAMINOPHEN [Concomitant]
     Active Substance: ACETAMINOPHEN
     Indication: Supplementation therapy
     Route: 048
     Dates: start: 20220705, end: 20220707
  15. ACETAMINOPHEN [Concomitant]
     Active Substance: ACETAMINOPHEN
     Route: 048
     Dates: start: 20220713, end: 20220713
  16. RACECADOTRIL [Concomitant]
     Active Substance: RACECADOTRIL
     Indication: Supplementation therapy
     Route: 048
     Dates: start: 20220706
  17. RAMIPRIL [Concomitant]
     Active Substance: RAMIPRIL
     Indication: Supplementation therapy
     Route: 048
     Dates: start: 20220705, end: 20220707
  18. RAMIPRIL [Concomitant]
     Active Substance: RAMIPRIL
     Route: 048
     Dates: start: 20220713, end: 20220713
  19. SPIRONOLACTONE [Concomitant]
     Active Substance: SPIRONOLACTONE
     Indication: Supplementation therapy
     Route: 048
     Dates: start: 20220705, end: 20220707
  20. SPIRONOLACTONE [Concomitant]
     Active Substance: SPIRONOLACTONE
     Route: 048
     Dates: start: 20220713, end: 20220713
  21. APIXABAN [Concomitant]
     Active Substance: APIXABAN
     Indication: Atrial fibrillation
     Route: 048
     Dates: start: 20220704, end: 20220707
  22. APIXABAN [Concomitant]
     Active Substance: APIXABAN
     Route: 048
     Dates: start: 20220712, end: 20220713
  23. APREPITANT [Concomitant]
     Active Substance: APREPITANT
     Indication: Supplementation therapy
     Route: 048
     Dates: start: 20220706
  24. BISOPROLOL FUMARATE [Concomitant]
     Active Substance: BISOPROLOL FUMARATE
     Indication: Atrial fibrillation
     Route: 048
     Dates: start: 20220705, end: 20220707
  25. BISOPROLOL FUMARATE [Concomitant]
     Active Substance: BISOPROLOL FUMARATE
     Route: 048
     Dates: start: 20220713, end: 20220713

REACTIONS (1)
  - General physical health deterioration [Recovered/Resolved]

NARRATIVE: CASE EVENT DATE: 20220718
